FAERS Safety Report 14658878 (Version 2)
Quarter: 2018Q2

REPORT INFORMATION
  Report Type: Report from Study
  Country: US (occurrence: US)
  Receive Date: 20180320
  Receipt Date: 20180404
  Transmission Date: 20180711
  Serious: Yes (Other)
  Sender: FDA-Public Use
  Company Number: US-ROCHE-2070575

PATIENT
  Sex: Female
  Weight: 81.64 kg

DRUGS (16)
  1. BIOTIN [Concomitant]
     Active Substance: BIOTIN
     Route: 048
  2. BENADRYL [Concomitant]
     Active Substance: DIPHENHYDRAMINE HYDROCHLORIDE
     Dosage: BEDTIME
     Route: 048
  3. MOTRIN [Concomitant]
     Active Substance: IBUPROFEN
     Dosage: 200-400MG ASNEEDED
     Route: 048
  4. DOCUSATE [Concomitant]
     Active Substance: DOCUSATE
  5. UBIQUINOL [Concomitant]
     Active Substance: UBIQUINOL
     Route: 048
  6. LEVOTHYROXINE. [Concomitant]
     Active Substance: LEVOTHYROXINE
     Route: 048
  7. NUTROPIN AQ [Suspect]
     Active Substance: SOMATROPIN
     Dosage: STOPPED IN DEC-2015
     Route: 058
  8. PRAVACOL [Concomitant]
     Active Substance: PRAVASTATIN SODIUM
     Dosage: BEDTIME
     Route: 048
  9. VITAMIN C [Concomitant]
     Active Substance: ASCORBIC ACID
     Dosage: 2000 MG EVERY DAY
     Route: 048
  10. ZOCOR [Concomitant]
     Active Substance: SIMVASTATIN
     Route: 048
  11. NUTROPIN AQ [Suspect]
     Active Substance: SOMATROPIN
     Indication: HYPOPITUITARISM
     Dosage: STOPPED IN DEC-2015
     Route: 058
  12. ASPIRIN. [Concomitant]
     Active Substance: ASPIRIN
     Route: 048
  13. SINEMET [Concomitant]
     Active Substance: CARBIDOPA\LEVODOPA
     Route: 048
  14. QUINIDINE GLUCONATE. [Concomitant]
     Active Substance: QUINIDINE GLUCONATE
     Dosage: AS NEEDED
     Route: 048
  15. TYLENOL [Concomitant]
     Active Substance: ACETAMINOPHEN
  16. VITAMIN B12 [Concomitant]
     Active Substance: CYANOCOBALAMIN
     Route: 048

REACTIONS (14)
  - Parkinson^s disease [Unknown]
  - Fatigue [Unknown]
  - Arthralgia [Unknown]
  - Ataxia [Unknown]
  - Poor quality sleep [Unknown]
  - Initial insomnia [Unknown]
  - Blood thyroid stimulating hormone increased [Unknown]
  - Pain in extremity [Unknown]
  - Burning sensation [Unknown]
  - Tremor [Unknown]
  - Blood glucose increased [Unknown]
  - Weight increased [Unknown]
  - Muscle spasms [Unknown]
  - Hot flush [Unknown]
